FAERS Safety Report 20197424 (Version 1)
Quarter: 2021Q4

REPORT INFORMATION
  Report Type: Spontaneous
  Country: US (occurrence: US)
  Receive Date: 20211217
  Receipt Date: 20211217
  Transmission Date: 20220304
  Serious: Yes (Other)
  Sender: FDA-Public Use
  Company Number: US-PACIRA-2020000547

PATIENT

DRUGS (1)
  1. EXPAREL [Suspect]
     Active Substance: BUPIVACAINE
     Dosage: 10 CC
     Route: 065

REACTIONS (2)
  - Unresponsive to stimuli [Unknown]
  - Depressed level of consciousness [Unknown]
